FAERS Safety Report 4597003-3 (Version None)
Quarter: 2005Q1

REPORT INFORMATION
  Report Type: 
  Country: None (occurrence: None)
  Receive Date: 20050228
  Receipt Date: 20050215
  Transmission Date: 20050727
  Serious: Yes (Other)
  Sender: FDA-Public Use
  Company Number: 2005031822

PATIENT
  Sex: Female

DRUGS (2)
  1. GEODON [Suspect]
     Indication: BIPOLAR DISORDER
  2. DULOXETINE HYDROCHLORIDE (DULOXETINE HYDROCHLORIDE) [Suspect]
     Indication: BIPOLAR DISORDER

REACTIONS (2)
  - TARDIVE DYSKINESIA [None]
  - VICTIM OF CRIME [None]
